FAERS Safety Report 14674278 (Version 1)
Quarter: 2018Q1

REPORT INFORMATION
  Report Type: Spontaneous
  Country: CA (occurrence: CA)
  Receive Date: 20180323
  Receipt Date: 20180323
  Transmission Date: 20180509
  Serious: Yes (Disabling)
  Sender: FDA-Public Use
  Company Number: CA-BAYER-2018-051771

PATIENT
  Age: 49 Year
  Sex: Female
  Weight: 70.3 kg

DRUGS (2)
  1. MIRENA [Suspect]
     Active Substance: LEVONORGESTREL
     Indication: MENORRHAGIA
     Dosage: 20 MCG/24HR, CONT
     Route: 015
  2. MIRENA [Suspect]
     Active Substance: LEVONORGESTREL

REACTIONS (10)
  - Back pain [None]
  - Metrorrhagia [None]
  - Mood swings [None]
  - Migraine [None]
  - Breast pain [None]
  - Abdominal pain [None]
  - Paraesthesia [None]
  - Pigmentation disorder [None]
  - Vaginal odour [None]
  - Weight increased [None]
